FAERS Safety Report 6362594-9 (Version None)
Quarter: 2009Q3

REPORT INFORMATION
  Report Type: 
  Country: None (occurrence: None)
  Receive Date: 20090918
  Receipt Date: 20090603
  Transmission Date: 20100115
  Serious: No
  Sender: FDA-Public Use
  Company Number: US-ABBOTT-09P-163-0577687-00

PATIENT
  Sex: Female
  Weight: 78.996 kg

DRUGS (6)
  1. HUMIRA [Suspect]
     Indication: RHEUMATOID ARTHRITIS
     Route: 058
     Dates: start: 20060101
  2. HUMIRA [Suspect]
     Dates: start: 20050101, end: 20060101
  3. BENICAR [Concomitant]
     Indication: HYPERTENSION
  4. CHLORDIAZEPOXIDE [Concomitant]
     Indication: DRUG USE FOR UNKNOWN INDICATION
  5. ARAVA [Concomitant]
     Indication: RHEUMATOID ARTHRITIS
  6. ENABLEX [Concomitant]
     Indication: DRUG USE FOR UNKNOWN INDICATION

REACTIONS (1)
  - DRUG DOSE OMISSION [None]
